FAERS Safety Report 4685842-X (Version None)
Quarter: 2005Q2

REPORT INFORMATION
  Report Type: 
  Country: None (occurrence: None)
  Receive Date: 20050607
  Receipt Date: 20050607
  Transmission Date: 20051028
  Serious: Yes (Other)
  Sender: FDA-Public Use
  Company Number: None

PATIENT
  Age: 81 Year
  Sex: Female
  Weight: 93.8946 kg

DRUGS (12)
  1. AVELOX [Suspect]
     Indication: PNEUMONIA
     Dosage: 400 MG  IV  DAILY
     Route: 042
     Dates: start: 20050528, end: 20050529
  2. CLINDAMYCIN [Concomitant]
  3. VANCOMYCIN [Concomitant]
  4. IPRATROPIUM BROMIDE [Concomitant]
  5. ALBUTEROL [Concomitant]
  6. DALTEPARIN [Concomitant]
  7. PANTOPRAZOLE [Concomitant]
  8. METHYLPREDNISOLONE [Concomitant]
  9. LORAZEPAM [Concomitant]
  10. MORPHINE [Concomitant]
  11. MIDAZOLAM HCL [Concomitant]
  12. LASIX [Concomitant]

REACTIONS (1)
  - ELECTROCARDIOGRAM QT CORRECTED INTERVAL PROLONGED [None]
